FAERS Safety Report 9842438 (Version 2)
Quarter: 2015Q3

REPORT INFORMATION
  Report Type: Spontaneous
  Country: US (occurrence: US)
  Receive Date: 20140124
  Receipt Date: 20150730
  Transmission Date: 20151125
  Serious: No
  Sender: FDA-Public Use
  Company Number: US-GILEAD-2011-0040957

PATIENT
  Age: 63 Year
  Sex: Female

DRUGS (11)
  1. NITROSTAT [Concomitant]
     Active Substance: NITROGLYCERIN
  2. ASPIRIN. [Concomitant]
     Active Substance: ASPIRIN
  3. BYETTA [Concomitant]
     Active Substance: EXENATIDE
  4. ENALAPRIL [Concomitant]
     Active Substance: ENALAPRIL
  5. ATIVAN [Concomitant]
     Active Substance: LORAZEPAM
  6. IBUPROFEN. [Concomitant]
     Active Substance: IBUPROFEN
  7. RANEXA [Suspect]
     Active Substance: RANOLAZINE
     Indication: ANGINA PECTORIS
     Route: 048
  8. CALCIUM [Concomitant]
     Active Substance: CALCIUM
  9. NIASPAN [Concomitant]
     Active Substance: NIACIN
  10. VIVELLE-DOT [Concomitant]
     Active Substance: ESTRADIOL
  11. SYNTHROID [Concomitant]
     Active Substance: LEVOTHYROXINE SODIUM

REACTIONS (1)
  - Fatigue [Unknown]

NARRATIVE: CASE EVENT DATE: 20110620
